FAERS Safety Report 8259959 (Version 6)
Quarter: 2012Q4

REPORT INFORMATION
  Report Type: Report from Study
  Country: IL (occurrence: IL)
  Receive Date: 20111122
  Receipt Date: 20121220
  Transmission Date: 20130627
  Serious: Yes (Hospitalization)
  Sender: FDA-Public Use
  Company Number: PHHO2011IL019414

PATIENT
  Age: 5 Year
  Sex: Female
  Weight: 24.3 kg

DRUGS (1)
  1. ACZ885 [Suspect]
     Indication: JUVENILE ARTHRITIS
     Dosage: 90 mg, QMO
     Route: 058
     Dates: start: 20101014

REACTIONS (5)
  - Pyrexia [Recovered/Resolved]
  - Condition aggravated [Recovered/Resolved]
  - Leukopenia [Recovered/Resolved]
  - Viral infection [Recovered/Resolved]
  - Platelet count decreased [Recovered/Resolved]
